FAERS Safety Report 14258117 (Version 1)
Quarter: 2017Q4

REPORT INFORMATION
  Report Type: Spontaneous
  Country: FR (occurrence: FR)
  Receive Date: 20171207
  Receipt Date: 20171207
  Transmission Date: 20180321
  Serious: Yes (Life-Threatening, Hospitalization, Other)
  Sender: FDA-Public Use
  Company Number: FR-CIPLA LTD.-2017FR21472

PATIENT

DRUGS (5)
  1. VINCRISTINE [Suspect]
     Active Substance: VINCRISTINE
     Indication: ALVEOLAR RHABDOMYOSARCOMA
     Dosage: UNK
     Route: 065
  2. ACTINOMYCIN D [Suspect]
     Active Substance: DACTINOMYCIN
     Indication: ALVEOLAR RHABDOMYOSARCOMA
     Dosage: UNK
     Route: 065
  3. TEMOZOLOMIDE. [Suspect]
     Active Substance: TEMOZOLOMIDE
     Indication: ALVEOLAR RHABDOMYOSARCOMA
     Dosage: 125 MG/M^2 ADMINISTERED PER OS DAILY ; CYCLICAL
     Route: 048
  4. IFOSFAMIDE. [Suspect]
     Active Substance: IFOSFAMIDE
     Indication: ALVEOLAR RHABDOMYOSARCOMA
     Dosage: UNK
     Route: 065
  5. IRINOTECAN [Suspect]
     Active Substance: IRINOTECAN
     Indication: ALVEOLAR RHABDOMYOSARCOMA
     Dosage: 50 MG/M^2 ADMINISTERED BY IV DAILY ; CYCLICAL
     Route: 042

REACTIONS (15)
  - Toxicity to various agents [Unknown]
  - Diverticulitis [Unknown]
  - Hepatocellular injury [Unknown]
  - Diarrhoea [Recovered/Resolved]
  - Disease progression [Unknown]
  - Neutropenia [Recovered/Resolved]
  - Anaemia [Unknown]
  - Vomiting [Unknown]
  - Thrombocytopenia [Unknown]
  - Prerenal failure [Unknown]
  - Septic shock [Unknown]
  - Stomatitis [Unknown]
  - Enteritis [Unknown]
  - Dehydration [Unknown]
  - Alveolar rhabdomyosarcoma [Unknown]
